FAERS Safety Report 10518310 (Version 1)
Quarter: 2014Q4

REPORT INFORMATION
  Report Type: Spontaneous
  Country: US (occurrence: None)
  Receive Date: 20141014
  Receipt Date: 20141014
  Transmission Date: 20150528
  Serious: No
  Sender: FDA-Public Use
  Company Number: None

PATIENT
  Sex: Male

DRUGS (1)
  1. OTEZLA [Suspect]
     Active Substance: APREMILAST
     Indication: PSORIASIS
     Dosage: STARTER DOSE BID ORAL
     Route: 048
     Dates: start: 20141006

REACTIONS (5)
  - Headache [None]
  - Diarrhoea [None]
  - Pain in extremity [None]
  - Nausea [None]
  - Muscle tightness [None]
